FAERS Safety Report 17933858 (Version 1)
Quarter: 2020Q2

REPORT INFORMATION
  Report Type: Spontaneous
  Country: CA (occurrence: CA)
  Receive Date: 20200623
  Receipt Date: 20200623
  Transmission Date: 20200714
  Serious: Yes (Death)
  Sender: FDA-Public Use
  Company Number: CA-FRESENIUS KABI-FK202006363

PATIENT
  Age: 61 Year
  Sex: Male

DRUGS (2)
  1. DIPHENHYDRAMINE INJECTION (MANUFACTURER UNKNOWN) [Suspect]
     Active Substance: DIPHENHYDRAMINE
     Indication: INSOMNIA
     Route: 065
  2. DIPHENHYDRAMINE INJECTION (MANUFACTURER UNKNOWN) [Suspect]
     Active Substance: DIPHENHYDRAMINE
     Indication: ANXIETY

REACTIONS (7)
  - Delirium [Fatal]
  - Product use in unapproved indication [Fatal]
  - Autonomic nervous system imbalance [Fatal]
  - Drug withdrawal syndrome [Fatal]
  - Incorrect product administration duration [Fatal]
  - Hypertonia [Fatal]
  - Overdose [Fatal]
